FAERS Safety Report 8464919-7 (Version None)
Quarter: 2012Q2

REPORT INFORMATION
  Report Type: 
  Country: None (occurrence: None)
  Receive Date: 20120323
  Receipt Date: 20111021
  Transmission Date: 20120825
  Serious: Yes (Hospitalization)
  Sender: FDA-Public Use
  Company Number: 163-21880-11093470

PATIENT
  Age: 65 Year
  Sex: Female

DRUGS (6)
  1. SULINDAC [Concomitant]
  2. LOVASTATIN [Concomitant]
  3. ZOLPIDEM [Concomitant]
  4. REVLIMID [Suspect]
     Indication: 5Q MINUS SYNDROME
     Dosage: 10 MG, 1 IN 1 D, PO
     Route: 048
     Dates: start: 20110831, end: 20111005
  5. SERTRALINE HYDROCHLORIDE [Concomitant]
  6. MECLIZINE [Concomitant]

REACTIONS (2)
  - PRESYNCOPE [None]
  - MENINGITIS [None]
